FAERS Safety Report 6457729-3 (Version None)
Quarter: 2009Q4

REPORT INFORMATION
  Report Type: 
  Country: None (occurrence: None)
  Receive Date: 20091120
  Receipt Date: 20091109
  Transmission Date: 20100525
  Serious: Yes (Hospitalization)
  Sender: FDA-Public Use
  Company Number: OMPQ-NO-0911S-0939

PATIENT
  Age: 35 Year
  Sex: Male

DRUGS (2)
  1. OMNIPAQUE 350 [Suspect]
     Indication: CROHN'S DISEASE
     Dosage: 20 ML, SINGLE DOSE, I.V.
     Route: 042
     Dates: start: 20070322, end: 20070322
  2. INFLIXIMAB (REMICADE LYOPHILISAT) [Suspect]

REACTIONS (3)
  - INJECTION SITE PAIN [None]
  - INJECTION SITE PHLEBITIS [None]
  - SENSATION OF HEAVINESS [None]
